FAERS Safety Report 9000010 (Version 1)
Quarter: 2013Q1

REPORT INFORMATION
  Report Type: Spontaneous
  Country: US (occurrence: US)
  Receive Date: 20130102
  Receipt Date: 20130102
  Transmission Date: 20140127
  Serious: Yes (Hospitalization, Other)
  Sender: FDA-Public Use
  Company Number: US-PFIZER INC-2013000038

PATIENT
  Age: 64 Year
  Sex: Female

DRUGS (9)
  1. EFFEXOR XR [Suspect]
     Dosage: 150 MG, 1X/DAY
     Route: 048
  2. EFFEXOR [Suspect]
     Dosage: 150 MG, 1X/DAY (IN A.M.)
  3. HCTZ [Concomitant]
     Dosage: 50 MG, 1X/DAY (IN A.M.)
  4. ASPIRIN [Concomitant]
     Dosage: 325 MG, 1X/DAY (IN A.M.)
  5. KLOR-CON [Concomitant]
     Dosage: 10 MEQ, 1X/DAY (IN A.M.)
  6. ATENOLOL [Concomitant]
     Dosage: 50 MG, 1X/DAY (IN A.M.)
  7. LEVOTHYROXINE [Concomitant]
     Dosage: 0.1 MG, 1X/DAY (IN A.M.)
  8. PRILOSEC [Concomitant]
     Dosage: 20 MG, 1X/DAY (IN A.M.)
  9. CINNAMON [Concomitant]
     Dosage: 1000 MG, 1X/DAY (IN A.M.)

REACTIONS (2)
  - Cardiac disorder [Unknown]
  - Coronary artery disease [Unknown]
